FAERS Safety Report 7520738-7 (Version None)
Quarter: 2011Q2

REPORT INFORMATION
  Report Type: 
  Country: None (occurrence: None)
  Receive Date: 20110603
  Receipt Date: 20100915
  Transmission Date: 20111010
  Serious: Yes (Hospitalization, Other)
  Sender: FDA-Public Use
  Company Number: US-BAYER-200938715NA

PATIENT
  Age: 26 Year
  Sex: Female
  Weight: 105 kg

DRUGS (21)
  1. VITAMIN E [Concomitant]
     Dosage: 400 IEU DAILY
  2. CITRACAL PLUS [Concomitant]
     Indication: BONE DENSITY DECREASED
     Dosage: DAILY
  3. DIAZEPAM [Concomitant]
     Dosage: 10 MG, UNK
     Dates: start: 20071005
  4. ACETAMINOPHEN W/ PROPOXYPHENE HCL [Concomitant]
     Dosage: UNK
     Dates: start: 20080325
  5. TOPAMAX [Concomitant]
     Dosage: 200 MG, UNK
     Dates: start: 20070925
  6. ALBUTEROL SULFATE AUTOHALER [Concomitant]
     Dosage: 0.090 MG, UNK
     Dates: start: 20070925
  7. YAZ [Suspect]
     Indication: CONTRACEPTION
  8. ALPRAZOLAM [Concomitant]
     Dosage: 1 MG, UNK
     Dates: start: 20070929
  9. YASMIN [Suspect]
     Indication: CONTRACEPTION
  10. YAZ [Suspect]
     Indication: POLYCYSTIC OVARIES
     Route: 048
     Dates: start: 20070901
  11. VITAMIN D [Concomitant]
     Dosage: 400 IEU DAILY
  12. TOPAMAX [Concomitant]
     Dosage: 200 MG, UNK
     Dates: start: 20070826
  13. LEXAPRO [Concomitant]
     Dosage: 10 MG, UNK
     Dates: start: 20070919
  14. HYDROCODONE BITARTRATE AND ACETAMINOPHEN [Concomitant]
     Dosage: UNK
     Dates: start: 20070917
  15. ACIDOPHILUS [Concomitant]
     Dosage: 3 BILION CFU
  16. PROMETHAZINE [Concomitant]
     Dosage: 25 MG, UNK
     Dates: start: 20080125
  17. TOPAMAX [Concomitant]
     Dosage: 100 MG, UNK
     Dates: start: 20070925
  18. ALBUTEROL SULFATE AUTOHALER [Concomitant]
     Route: 055
  19. LEXAPRO [Concomitant]
     Dosage: 10 MG, UNK
     Dates: start: 20070817
  20. HYDROCODONE BITARTRATE AND ACETAMINOPHEN [Concomitant]
     Dosage: UNK
     Dates: start: 20080125
  21. YASMIN [Suspect]
     Indication: POLYCYSTIC OVARIES
     Route: 048
     Dates: start: 20070802, end: 20081101

REACTIONS (7)
  - HEPATIC ENZYME ABNORMAL [None]
  - NAUSEA [None]
  - HEPATOMEGALY [None]
  - ABDOMINAL PAIN [None]
  - CHOLELITHIASIS [None]
  - DIARRHOEA [None]
  - CHOLECYSTITIS CHRONIC [None]
